FAERS Safety Report 18572958 (Version 1)
Quarter: 2020Q4

REPORT INFORMATION
  Report Type: Report from Study
  Country: FR (occurrence: FR)
  Receive Date: 20201203
  Receipt Date: 20201203
  Transmission Date: 20210114
  Serious: Yes (Other)
  Sender: FDA-Public Use
  Company Number: FR-ROCHE-2720921

PATIENT
  Age: 66 Year
  Sex: Male

DRUGS (8)
  1. VISMODEGIB. [Suspect]
     Active Substance: VISMODEGIB
     Route: 065
     Dates: start: 20111006
  2. VISMODEGIB. [Suspect]
     Active Substance: VISMODEGIB
     Route: 065
     Dates: start: 20110906
  3. VISMODEGIB. [Suspect]
     Active Substance: VISMODEGIB
     Route: 065
     Dates: start: 20111103
  4. VISMODEGIB. [Suspect]
     Active Substance: VISMODEGIB
     Route: 065
     Dates: start: 20110408
  5. VISMODEGIB. [Suspect]
     Active Substance: VISMODEGIB
     Route: 065
     Dates: start: 20110805
  6. VISMODEGIB. [Suspect]
     Active Substance: VISMODEGIB
     Indication: CHONDROSARCOMA
     Route: 065
     Dates: start: 20110314
  7. VISMODEGIB. [Suspect]
     Active Substance: VISMODEGIB
     Route: 065
     Dates: start: 20110609
  8. VISMODEGIB. [Suspect]
     Active Substance: VISMODEGIB
     Route: 065
     Dates: start: 20110705

REACTIONS (6)
  - Anaemia [Unknown]
  - Dehydration [Unknown]
  - Tumour pain [Unknown]
  - General physical health deterioration [Unknown]
  - Urinary tract infection [Unknown]
  - Sepsis [Unknown]
